FAERS Safety Report 11695376 (Version 3)
Quarter: 2015Q4

REPORT INFORMATION
  Report Type: Spontaneous
  Country: IT (occurrence: IT)
  Receive Date: 20151104
  Receipt Date: 20151119
  Transmission Date: 20160304
  Serious: Yes (Other)
  Sender: FDA-Public Use
  Company Number: IT-ROCHE-1653602

PATIENT
  Age: 78 Year
  Sex: Female

DRUGS (11)
  1. ROACTEMRA [Suspect]
     Active Substance: TOCILIZUMAB
     Indication: RHEUMATOID ARTHRITIS
     Dosage: TOCILIZUMAB 20 MG/ML 4 ML AND 20 MG/ML 20 ML VIAL.
     Route: 042
     Dates: start: 20130610, end: 20151001
  2. ESOMEPRAZOLE [Concomitant]
     Active Substance: ESOMEPRAZOLE
     Indication: OESOPHAGITIS
     Route: 048
  3. EUTIROX [Concomitant]
     Active Substance: LEVOTHYROXINE SODIUM
     Indication: HYPOTHYROIDISM
     Dosage: 50 MICROGRAM TABLETS 50 TABLETS
     Route: 065
  4. DIFOSFONAL [Concomitant]
     Active Substance: CLODRONATE DISODIUM
     Indication: OSTEOPOROSIS PROPHYLAXIS
     Dosage: 100 MG/3.3 ML SOLUTION WITH LIDOCAINE 1%^ 6 VIALS
     Route: 030
  5. TAVOR [Concomitant]
     Active Substance: LORAZEPAM
     Dosage: 1 MG TABLETS 20 TABLETS
     Route: 048
  6. PERIDON (ITALY) [Concomitant]
     Dosage: 10 MG FILM COATED TABLETS^ 30 TABLETS
     Route: 048
  7. DELTACORTENE [Concomitant]
     Active Substance: PREDNISONE
     Indication: RHEUMATOID ARTHRITIS
     Dosage: 5 MG TABLETS^ 20 TABLETS
     Route: 048
     Dates: start: 20100101, end: 20151111
  8. LEVOPRAID [Concomitant]
     Active Substance: SULPIRIDE
     Dosage: 25 MG TABLETS 20 TABLETS
     Route: 048
  9. ANTACAL [Concomitant]
     Active Substance: AMLODIPINE BESYLATE
     Indication: HYPERTENSION
     Dosage: 10 MG TABLETS 14 TABLETS
     Route: 048
  10. EUTIROX [Concomitant]
     Active Substance: LEVOTHYROXINE SODIUM
     Dosage: ^75 MICROGRAM TABLETS 50 TABLETS
     Route: 048
  11. GAVISCON ADVANCE [Concomitant]
     Active Substance: POTASSIUM BICARBONATE\SODIUM ALGINATE
     Indication: GASTRITIS
     Route: 048

REACTIONS (5)
  - Road traffic accident [Unknown]
  - Confusional state [Recovered/Resolved with Sequelae]
  - Vertigo [Recovered/Resolved with Sequelae]
  - Cerebrovascular accident [Recovered/Resolved with Sequelae]
  - Dizziness [Recovered/Resolved]

NARRATIVE: CASE EVENT DATE: 2015
